FAERS Safety Report 11902439 (Version 1)
Quarter: 2016Q1

REPORT INFORMATION
  Report Type: Spontaneous
  Country: PE (occurrence: PE)
  Receive Date: 20160108
  Receipt Date: 20160108
  Transmission Date: 20160526
  Serious: Yes (Hospitalization, Other)
  Sender: FDA-Public Use
  Company Number: PE-009507513-1601PER000037

PATIENT
  Age: 60 Year
  Sex: Male

DRUGS (3)
  1. JANUMET [Suspect]
     Active Substance: METFORMIN HYDROCHLORIDE\SITAGLIPTIN PHOSPHATE
     Indication: DIABETES MELLITUS
     Dosage: 1 DF(50/ 1000 MG), BID, TOTAL DAILY DOSE 100/200MG
     Route: 048
     Dates: start: 20140912, end: 201503
  2. JANUVIA [Concomitant]
     Active Substance: SITAGLIPTIN PHOSPHATE
     Indication: DIABETES MELLITUS
     Dosage: 100 MG, QD
     Route: 048
     Dates: start: 201503
  3. JANUVIA [Concomitant]
     Active Substance: SITAGLIPTIN PHOSPHATE
     Dosage: 100 MG, ONCE A DAY
     Route: 048

REACTIONS (5)
  - Lower limb fracture [Recovering/Resolving]
  - Osteomyelitis [Recovering/Resolving]
  - Foot fracture [Recovering/Resolving]
  - Impaired healing [Recovering/Resolving]
  - Intramedullary rod insertion [Recovering/Resolving]

NARRATIVE: CASE EVENT DATE: 2015
